FAERS Safety Report 21834622 (Version 5)
Quarter: 2025Q2

REPORT INFORMATION
  Report Type: Spontaneous
  Country: US (occurrence: US)
  Receive Date: 20230108
  Receipt Date: 20250421
  Transmission Date: 20250716
  Serious: No
  Sender: ROCHE
  Company Number: US-ROCHE-3156407

PATIENT
  Age: 39 Year
  Sex: Male

DRUGS (3)
  1. HEMLIBRA [Suspect]
     Active Substance: EMICIZUMAB-KXWH
     Indication: Factor VIII deficiency
     Dosage: STRENGTH: 150 MG/ML?SDV (SINGLE DOSE VIAL)
     Route: 058
     Dates: start: 20211004
  2. HEMLIBRA [Suspect]
     Active Substance: EMICIZUMAB-KXWH
     Dosage: STRENGTH: 150 MG/ML?SDV (SINGLE DOSE VIAL)
     Route: 058
     Dates: start: 20221007
  3. HEMLIBRA [Suspect]
     Active Substance: EMICIZUMAB-KXWH
     Dosage: STRENGTH: 300MG/2ML
     Route: 058
     Dates: start: 202201

REACTIONS (8)
  - Haemorrhage [Unknown]
  - Contusion [Unknown]
  - Mass [Unknown]
  - Limb injury [Unknown]
  - Tendon rupture [Unknown]
  - Haemorrhage [Recovered/Resolved]
  - Muscle haemorrhage [Unknown]
  - Haemorrhage [Not Recovered/Not Resolved]

NARRATIVE: CASE EVENT DATE: 20250319
